FAERS Safety Report 12776349 (Version 3)
Quarter: 2016Q4

REPORT INFORMATION
  Report Type: Spontaneous
  Country: AT (occurrence: AT)
  Receive Date: 20160923
  Receipt Date: 20161027
  Transmission Date: 20170207
  Serious: Yes (Life-Threatening, Hospitalization, Other)
  Sender: FDA-Public Use
  Company Number: AT-INCYTE CORPORATION-2016IN005859

PATIENT
  Age: 75 Year
  Sex: Male
  Weight: 68 kg

DRUGS (22)
  1. RAMIPRIL. [Concomitant]
     Active Substance: RAMIPRIL
     Indication: PRODUCT USED FOR UNKNOWN INDICATION
     Dosage: ? EVENING
     Route: 065
  2. HYDROXYUREA. [Concomitant]
     Active Substance: HYDROXYUREA
     Indication: PRODUCT USED FOR UNKNOWN INDICATION
     Dosage: 1 OT, 1 MORNING, 1 EVENING
     Route: 065
  3. LASIX [Concomitant]
     Active Substance: FUROSEMIDE
     Indication: PRODUCT USED FOR UNKNOWN INDICATION
     Dosage: 2 MORNING, 1 NOON
     Route: 065
  4. JAKAVI [Suspect]
     Active Substance: RUXOLITINIB
     Indication: POLYCYTHAEMIA VERA
  5. CLOPIDOGREL [Concomitant]
     Active Substance: CLOPIDOGREL BISULFATE
     Indication: PRODUCT USED FOR UNKNOWN INDICATION
     Dosage: 1 DF, NOON
     Route: 065
  6. ALLOPURINOL. [Concomitant]
     Active Substance: ALLOPURINOL
     Indication: PRODUCT USED FOR UNKNOWN INDICATION
     Dosage: 1 DF, EVENING
     Route: 065
  7. EBRANTIL [Concomitant]
     Active Substance: URAPIDIL
     Indication: PRODUCT USED FOR UNKNOWN INDICATION
     Dosage: 1 DF, MORNING
     Route: 065
  8. OLEOVIT D3 [Concomitant]
     Active Substance: CHOLECALCIFEROL
     Indication: PRODUCT USED FOR UNKNOWN INDICATION
     Dosage: 30 DRP, SUNDAY
     Route: 065
  9. LEVETIRACETAM. [Concomitant]
     Active Substance: LEVETIRACETAM
     Indication: PRODUCT USED FOR UNKNOWN INDICATION
     Dosage: 1 MORNING, 1 EVENING
     Route: 065
  10. FOLSAN [Concomitant]
     Active Substance: FOLIC ACID
     Indication: PRODUCT USED FOR UNKNOWN INDICATION
     Dosage: TUESDAY AND FRIDAY
     Route: 065
  11. APREDNISLON [Concomitant]
     Active Substance: PREDNISOLONE
     Indication: PRODUCT USED FOR UNKNOWN INDICATION
     Dosage: ? MORNING
     Route: 065
  12. VOLTAREN EMULGEL ^NOVARTIS^ [Concomitant]
     Indication: PRODUCT USED FOR UNKNOWN INDICATION
     Dosage: LOCAL RIGHT WRIST
     Route: 065
  13. FRAGMIN [Concomitant]
     Active Substance: DALTEPARIN SODIUM
     Indication: PRODUCT USED FOR UNKNOWN INDICATION
     Dosage: 5000IE + NSK , 1 MORNING
     Route: 058
  14. JAKAVI [Suspect]
     Active Substance: RUXOLITINIB
     Indication: MYELOFIBROSIS
  15. CONCOR [Concomitant]
     Active Substance: BISOPROLOL FUMARATE
     Indication: PRODUCT USED FOR UNKNOWN INDICATION
     Dosage: 0.5 OT, ? MORNING
     Route: 065
  16. CALCIDURAN [Concomitant]
     Indication: PRODUCT USED FOR UNKNOWN INDICATION
     Dosage: 500MG/800IE, 1 NOON
     Route: 065
  17. NOVALGIN [Concomitant]
     Active Substance: METAMIZOLE SODIUM
     Indication: PRODUCT USED FOR UNKNOWN INDICATION
     Dosage: 1 MORNING 1 NOON, 1 EVENING
     Route: 065
  18. ICHTHOLAN [Concomitant]
     Indication: PRODUCT USED FOR UNKNOWN INDICATION
     Dosage: LOCAL ON SECOND TOE LEFT
     Route: 065
  19. JAKAVI [Suspect]
     Active Substance: RUXOLITINIB
     Indication: MYELOFIBROSIS
     Dosage: 1 DF, BID (10 MG 2 TIMES IN 1 DAY)
     Route: 065
     Dates: start: 20160727, end: 20160901
  20. EUTHYROX [Concomitant]
     Active Substance: LEVOTHYROXINE SODIUM
     Indication: PRODUCT USED FOR UNKNOWN INDICATION
     Dosage: 1 OT, MORNING
     Route: 065
  21. PANTOLOC//PANTOPRAZOLE SODIUM SESQUIHYDRATE [Concomitant]
     Active Substance: PANTOPRAZOLE SODIUM
     Indication: PRODUCT USED FOR UNKNOWN INDICATION
     Dosage: 1 DF,  MORNING
     Route: 065
  22. SPIROBENE [Concomitant]
     Active Substance: SPIRONOLACTONE
     Indication: PRODUCT USED FOR UNKNOWN INDICATION
     Dosage: ? EVERY SECOND DAY
     Route: 065

REACTIONS (14)
  - Joint swelling [Unknown]
  - Gamma-glutamyltransferase increased [Unknown]
  - Ascites [Unknown]
  - Platelet count increased [Unknown]
  - Hepatomegaly [Unknown]
  - White blood cell count increased [Unknown]
  - Restlessness [Unknown]
  - Peripheral swelling [Unknown]
  - Dyspnoea [Recovering/Resolving]
  - Pulmonary congestion [Unknown]
  - Posterior reversible encephalopathy syndrome [Recovering/Resolving]
  - Haemolysis [Unknown]
  - Spleen disorder [Unknown]
  - Pulmonary vascular disorder [Unknown]

NARRATIVE: CASE EVENT DATE: 20160901
